FAERS Safety Report 9096774 (Version 2)
Quarter: 2014Q2

REPORT INFORMATION
  Report Type: Spontaneous
  Country: CA (occurrence: CA)
  Receive Date: 20130211
  Receipt Date: 20140407
  Transmission Date: 20141212
  Serious: Yes (Life-Threatening, Other)
  Sender: FDA-Public Use
  Company Number: CA-ELI_LILLY_AND_COMPANY-CA201302000465

PATIENT
  Age: 67 Year
  Sex: Female
  Weight: 52.15 kg

DRUGS (7)
  1. CYMBALTA [Suspect]
     Indication: NEURALGIA
     Dosage: 30 MG, QD
     Route: 048
     Dates: start: 20120508, end: 20120515
  2. CYMBALTA [Suspect]
     Dosage: 60 MG, QD
     Route: 048
     Dates: start: 20120516
  3. LYRICA [Concomitant]
     Indication: PRODUCT USED FOR UNKNOWN INDICATION
     Dosage: 150 MG, TID
  4. MICARDIS [Concomitant]
     Indication: PRODUCT USED FOR UNKNOWN INDICATION
     Dosage: 80 MG, QD
     Route: 048
     Dates: start: 2004
  5. NEXIUM [Concomitant]
     Indication: PRODUCT USED FOR UNKNOWN INDICATION
     Dosage: 40 MG, QD
     Route: 048
     Dates: start: 2010
  6. RIVOTRIL [Concomitant]
     Indication: ANXIETY
     Dosage: 0.5 MG, PRN
     Route: 065
  7. RIVOTRIL [Concomitant]
     Indication: MUSCLE SPASMS

REACTIONS (17)
  - Facial spasm [Unknown]
  - Hypertension [Unknown]
  - Diaphragmatic disorder [Unknown]
  - Off label use [Unknown]
  - Pain [Unknown]
  - Erythema [Unknown]
  - Dyskinesia [Unknown]
  - Fatigue [Unknown]
  - Flushing [Unknown]
  - Head discomfort [Unknown]
  - Headache [Unknown]
  - Muscle spasms [Unknown]
  - Nausea [Unknown]
  - Neck pain [Unknown]
  - Paraesthesia [Unknown]
  - Somnolence [Unknown]
  - Ear discomfort [Unknown]
